FAERS Safety Report 9013526 (Version 2)
Quarter: 2013Q2

REPORT INFORMATION
  Report Type: Spontaneous
  Country: SE (occurrence: None)
  Receive Date: 20121231
  Receipt Date: 20130612
  Transmission Date: 20140414
  Serious: Yes (Hospitalization)
  Sender: FDA-Public Use
  Company Number: DSA_61572_2012

PATIENT
  Sex: Female

DRUGS (1)
  1. VOXRA [Suspect]
     Indication: DEPRESSION

REACTIONS (2)
  - Arthralgia [None]
  - Eyelid function disorder [None]
